FAERS Safety Report 25715326 (Version 1)
Quarter: 2025Q3

REPORT INFORMATION
  Report Type: Spontaneous
  Country: EU (occurrence: EU)
  Receive Date: 20250822
  Receipt Date: 20250822
  Transmission Date: 20251020
  Serious: Yes (Other)
  Sender: AZURITY PHARMACEUTICALS
  Company Number: EU-COVIS PHARMA-AZR202508-002479

PATIENT
  Sex: Male
  Weight: 2.04 kg

DRUGS (5)
  1. ALVESCO [Suspect]
     Active Substance: CICLESONIDE
     Indication: Asthma
     Route: 064
     Dates: start: 202405, end: 202501
  2. ASPIRIN [Suspect]
     Active Substance: ASPIRIN
     Indication: Ultrasound Doppler abnormal
     Route: 064
     Dates: start: 202408, end: 202501
  3. PERTUSSIS VACCINE [Concomitant]
     Active Substance: PERTUSSIS VACCINE
     Indication: Immunisation
     Route: 064
  4. Rennie [Concomitant]
     Indication: Dyspepsia
     Route: 064
  5. INFLUENZA VIRUS VACCINE [Concomitant]
     Active Substance: INFLUENZA VIRUS VACCINE
     Indication: Immunisation
     Route: 064
     Dates: start: 202410, end: 202410

REACTIONS (2)
  - Small for dates baby [Recovering/Resolving]
  - Foetal exposure during pregnancy [Unknown]

NARRATIVE: CASE EVENT DATE: 20250101
